FAERS Safety Report 5783784-X (Version None)
Quarter: 2008Q2

REPORT INFORMATION
  Report Type: 
  Country: None (occurrence: None)
  Receive Date: 20080605
  Receipt Date: 20080325
  Transmission Date: 20081010
  Serious: No
  Sender: FDA-Public Use
  Company Number: A0717187A

PATIENT
  Age: 47 Year
  Sex: Female
  Weight: 78 kg

DRUGS (2)
  1. ALLI [Suspect]
  2. LYRICA [Suspect]

REACTIONS (5)
  - ANOREXIA [None]
  - BLOOD GLUCOSE DECREASED [None]
  - DEPRESSION [None]
  - HUNGER [None]
  - NERVOUSNESS [None]
